FAERS Safety Report 13758300 (Version 1)
Quarter: 2017Q3

REPORT INFORMATION
  Report Type: Spontaneous
  Country: US (occurrence: US)
  Receive Date: 20170717
  Receipt Date: 20170717
  Transmission Date: 20171127
  Serious: No
  Sender: FDA-Public Use
  Company Number: US-PFIZER INC-2017305870

PATIENT
  Age: 73 Year
  Sex: Male
  Weight: 104.3 kg

DRUGS (2)
  1. GABAPENTIN. [Suspect]
     Active Substance: GABAPENTIN
     Indication: NEUROPATHY PERIPHERAL
     Dosage: 600 MG, 1X/DAY AT BEDTIME
     Route: 048
     Dates: start: 201706
  2. GABAPENTIN. [Suspect]
     Active Substance: GABAPENTIN
     Indication: PAIN IN EXTREMITY
     Dosage: UNK

REACTIONS (4)
  - Drug ineffective for unapproved indication [Unknown]
  - Condition aggravated [Unknown]
  - Malaise [Unknown]
  - Intentional product misuse [Unknown]
